FAERS Safety Report 10470464 (Version 2)
Quarter: 2015Q1

REPORT INFORMATION
  Report Type: Report from Study
  Country: US (occurrence: US)
  Receive Date: 20140923
  Receipt Date: 20150312
  Transmission Date: 20150720
  Serious: Yes (Other)
  Sender: FDA-Public Use
  Company Number: US-ALEXION PHARMACEUTICALS INC-A201305646

PATIENT

DRUGS (7)
  1. ARANESP [Concomitant]
     Active Substance: DARBEPOETIN ALFA
     Indication: CHRONIC KIDNEY DISEASE
     Dosage: 200 ?G, Q2W
     Route: 065
     Dates: start: 201407
  2. VITAMIN B12 [Concomitant]
     Active Substance: CYANOCOBALAMIN
     Indication: VITAMIN B12 DEFICIENCY
     Route: 030
  3. PERCOCET                           /00446701/ [Concomitant]
     Active Substance: ACETAMINOPHEN\OXYCODONE HYDROCHLORIDE\OXYCODONE TEREPHTHALATE
     Indication: PAIN
     Dosage: 5 MG-325 MG, Q4H PRN
     Route: 048
  4. SOLIRIS [Suspect]
     Active Substance: ECULIZUMAB
     Indication: PAROXYSMAL NOCTURNAL HAEMOGLOBINURIA
     Dosage: 1200 MG, Q12D
     Route: 042
  5. LASIX [Concomitant]
     Active Substance: FUROSEMIDE
     Indication: PRODUCT USED FOR UNKNOWN INDICATION
     Route: 048
  6. ATIVAN [Concomitant]
     Active Substance: LORAZEPAM
     Indication: ANXIETY
     Dosage: 0.5 MG, Q6-8 H PRN
     Route: 048
  7. FOLATE [Concomitant]
     Active Substance: FOLATE SODIUM
     Indication: PRODUCT USED FOR UNKNOWN INDICATION
     Dosage: 1 TABLET, QD
     Route: 048

REACTIONS (17)
  - Haemoglobin abnormal [Unknown]
  - Haemolytic anaemia [Unknown]
  - Platelet count decreased [Unknown]
  - Alpha 1 foetoprotein increased [Unknown]
  - Anaemia vitamin B12 deficiency [Unknown]
  - Pancytopenia [Unknown]
  - Inflammation [Unknown]
  - Splenomegaly [Unknown]
  - Chronic kidney disease [Unknown]
  - Drug ineffective [Unknown]
  - Pernicious anaemia [Unknown]
  - Hepatomegaly [Unknown]
  - Anaemia [Unknown]
  - Liver disorder [Unknown]
  - Oedema peripheral [Unknown]
  - Malabsorption [Unknown]
  - Inappropriate schedule of drug administration [Unknown]

NARRATIVE: CASE EVENT DATE: 2013
